FAERS Safety Report 19660147 (Version 1)
Quarter: 2021Q3

REPORT INFORMATION
  Report Type: Spontaneous
  Country: US (occurrence: US)
  Receive Date: 20210804
  Receipt Date: 20210804
  Transmission Date: 20211014
  Serious: Yes (Other)
  Sender: FDA-Public Use
  Company Number: None

PATIENT
  Age: 67 Year
  Sex: Female

DRUGS (11)
  1. ASPIRIN. [Concomitant]
     Active Substance: ASPIRIN
  2. LISINOPRIL. [Concomitant]
     Active Substance: LISINOPRIL
  3. METOPROLOL. [Concomitant]
     Active Substance: METOPROLOL
  4. DIAZEPAM. [Concomitant]
     Active Substance: DIAZEPAM
  5. GLATIRAMER [Concomitant]
     Active Substance: GLATIRAMER
  6. DALFAMPRIDINE 10MG ER TABLETS [Suspect]
     Active Substance: DALFAMPRIDINE
     Indication: MULTIPLE SCLEROSIS
     Route: 048
     Dates: start: 20210611, end: 20210804
  7. AMTRIPTYLINE [Concomitant]
  8. BIKTARVY [Concomitant]
     Active Substance: BICTEGRAVIR SODIUM\EMTRICITABINE\TENOFOVIR ALAFENAMIDE FUMARATE
  9. DRONABINOL. [Concomitant]
     Active Substance: DRONABINOL
  10. VITAMIN D [Concomitant]
     Active Substance: VITAMIN D NOS
  11. LYRICA [Concomitant]
     Active Substance: PREGABALIN

REACTIONS (3)
  - Blood urine present [None]
  - Back pain [None]
  - Therapy cessation [None]

NARRATIVE: CASE EVENT DATE: 20210804
